FAERS Safety Report 5965247-1 (Version None)
Quarter: 2008Q4

REPORT INFORMATION
  Report Type: 
  Country: None (occurrence: None)
  Receive Date: 20081125
  Receipt Date: 20081124
  Transmission Date: 20090506
  Serious: Yes (Hospitalization)
  Sender: FDA-Public Use
  Company Number: PHHO2004US06243

PATIENT
  Age: 68 Year
  Sex: Male

DRUGS (14)
  1. STI571/CGP57148B T35717+CAPS [Suspect]
     Indication: PROSTATE CANCER
     Dosage: 600 MG, QD
     Route: 048
     Dates: start: 20031204
  2. TAXOTERE [Suspect]
     Indication: PROSTATE CANCER
     Dosage: 60MG
     Route: 042
     Dates: start: 20031204
  3. LUPRON [Concomitant]
  4. PEPCID [Concomitant]
  5. ACEON [Concomitant]
  6. ALLEGRA [Concomitant]
  7. CENTRUM SILVER [Concomitant]
  8. MULTI-VITAMINS [Concomitant]
  9. VITAMIN B6 [Concomitant]
  10. AMBIEN [Concomitant]
  11. LOVENOX [Concomitant]
  12. LASIX [Concomitant]
  13. POTASSIUM CHLORIDE [Concomitant]
  14. NEURONTIN [Concomitant]

REACTIONS (5)
  - ASTHENIA [None]
  - DIZZINESS [None]
  - DYSPNOEA [None]
  - HYPOTENSION [None]
  - SUPRAVENTRICULAR TACHYCARDIA [None]
